FAERS Safety Report 11397835 (Version 1)
Quarter: 2015Q3

REPORT INFORMATION
  Report Type: Spontaneous
  Country: US (occurrence: US)
  Receive Date: 20150819
  Receipt Date: 20150819
  Transmission Date: 20151125
  Serious: No
  Sender: FDA-Public Use
  Company Number: US-ELI_LILLY_AND_COMPANY-US201508004905

PATIENT
  Sex: Female

DRUGS (6)
  1. FORTEO [Suspect]
     Active Substance: TERIPARATIDE
     Indication: BONE DENSITY DECREASED
     Dosage: UNK, QD
     Route: 065
     Dates: start: 20150623
  2. SIMVASTATIN. [Concomitant]
     Active Substance: SIMVASTATIN
  3. FORTEO [Suspect]
     Active Substance: TERIPARATIDE
     Dosage: UNK, QD
     Route: 065
  4. FOSAMAX [Concomitant]
     Active Substance: ALENDRONATE SODIUM
  5. DIAZEPAM. [Concomitant]
     Active Substance: DIAZEPAM
  6. LISINOPRIL. [Concomitant]
     Active Substance: LISINOPRIL

REACTIONS (5)
  - Pain in extremity [Unknown]
  - Drug dose omission [Unknown]
  - Insomnia [Unknown]
  - Injection site pain [Unknown]
  - Device malfunction [None]

NARRATIVE: CASE EVENT DATE: 20150623
